FAERS Safety Report 8613246-3 (Version None)
Quarter: 2012Q3

REPORT INFORMATION
  Report Type: 
  Country: None (occurrence: None)
  Receive Date: 20120822
  Receipt Date: 20120718
  Transmission Date: 20120928
  Serious: No
  Sender: FDA-Public Use
  Company Number: US-009507513-1207USA008259

PATIENT

DRUGS (4)
  1. METOPROLOL TARTRATE [Concomitant]
  2. COZAAR [Suspect]
     Indication: HYPERTENSION
     Dosage: 100 MG, QD
     Route: 048
     Dates: start: 20100101, end: 20100701
  3. SYNTHROID [Concomitant]
  4. AMODIN [Concomitant]

REACTIONS (3)
  - MUSCLE SPASMS [None]
  - DIARRHOEA [None]
  - HEADACHE [None]
